FAERS Safety Report 14419303 (Version 1)
Quarter: 2018Q1

REPORT INFORMATION
  Report Type: Spontaneous
  Country: US (occurrence: US)
  Receive Date: 20180119
  Receipt Date: 20180119
  Transmission Date: 20180509
  Serious: No
  Sender: FDA-Public Use
  Company Number: None

PATIENT
  Age: 52 Year
  Sex: Male

DRUGS (1)
  1. IMATINIB MES TAB 400MG [Suspect]
     Active Substance: IMATINIB
     Route: 048
     Dates: start: 20170111

REACTIONS (3)
  - Wrong technique in product usage process [None]
  - Economic problem [None]
  - Incorrect dose administered [None]

NARRATIVE: CASE EVENT DATE: 20180112
